FAERS Safety Report 7306661-1 (Version None)
Quarter: 2011Q1

REPORT INFORMATION
  Report Type: 
  Country: None (occurrence: None)
  Receive Date: 20110222
  Receipt Date: 20110214
  Transmission Date: 20110831
  Serious: Yes (Other)
  Sender: FDA-Public Use
  Company Number: US-B.I. PHARMACEUTICALS,INC./RIDGEFIELD-2011-BP-02944BP

PATIENT
  Sex: Male

DRUGS (3)
  1. FLOMAX [Suspect]
     Indication: SLEEP DISORDER
  2. DIAZEPAM [Suspect]
     Indication: SLEEP DISORDER
  3. XALATAN [Suspect]

REACTIONS (1)
  - INTRAOCULAR PRESSURE INCREASED [None]
